FAERS Safety Report 17007185 (Version 3)
Quarter: 2019Q4

REPORT INFORMATION
  Report Type: Report from Study
  Country: None (occurrence: US)
  Receive Date: 20191107
  Receipt Date: 20191218
  Transmission Date: 20200122
  Serious: Yes (Other)
  Sender: FDA-Public Use
  Company Number: US-ABBVIE-19K-163-2990335-00

PATIENT
  Age: 39 Year
  Sex: Female

DRUGS (3)
  1. HUMIRA [Suspect]
     Active Substance: ADALIMUMAB
     Indication: COLITIS ULCERATIVE
     Route: 058
     Dates: start: 20191024, end: 20191024
  2. HUMIRA [Suspect]
     Active Substance: ADALIMUMAB
     Dosage: 15 DAY
     Route: 058
     Dates: start: 20191106, end: 20191106
  3. XARELTO [Suspect]
     Active Substance: RIVAROXABAN
     Indication: PRODUCT USED FOR UNKNOWN INDICATION
     Route: 065
     Dates: start: 20191105

REACTIONS (16)
  - Decreased appetite [Recovering/Resolving]
  - Depressed mood [Unknown]
  - Loss of personal independence in daily activities [Not Recovered/Not Resolved]
  - Incorrect dose administered [Not Recovered/Not Resolved]
  - Peripheral swelling [Unknown]
  - Nausea [Not Recovered/Not Resolved]
  - Weight increased [Unknown]
  - Anxiety [Unknown]
  - Diarrhoea [Recovering/Resolving]
  - Vomiting [Not Recovered/Not Resolved]
  - Pain [Recovering/Resolving]
  - Blood count abnormal [Unknown]
  - Device issue [Not Recovered/Not Resolved]
  - Thrombosis [Not Recovered/Not Resolved]
  - Rectal haemorrhage [Unknown]
  - Injection site pain [Recovered/Resolved]

NARRATIVE: CASE EVENT DATE: 2019
